FAERS Safety Report 5157642-8 (Version None)
Quarter: 2006Q4

REPORT INFORMATION
  Report Type: 
  Country: None (occurrence: None)
  Receive Date: 20061127
  Receipt Date: 20061024
  Transmission Date: 20070319
  Serious: Yes (Other)
  Sender: FDA-Public Use
  Company Number: US-BAYER-200616186BWH

PATIENT
  Sex: Female

DRUGS (2)
  1. TRASYLOL [Suspect]
     Indication: CORONARY ARTERY BYPASS
     Dosage: UNIT DOSE: 10000 KIU
     Route: 042
     Dates: start: 20060717, end: 20060717
  2. VANCOMYCIN [Concomitant]
     Indication: DRUG USE FOR UNKNOWN INDICATION

REACTIONS (5)
  - MYCOBACTERIAL INFECTION [None]
  - NECROSIS [None]
  - SKIN LESION [None]
  - SKIN WARM [None]
  - THROMBOPHLEBITIS [None]
